FAERS Safety Report 6831690-1 (Version None)
Quarter: 2010Q3

REPORT INFORMATION
  Report Type: 
  Country: None (occurrence: None)
  Receive Date: 20100706
  Receipt Date: 20100623
  Transmission Date: 20110219
  Serious: Yes (Hospitalization)
  Sender: FDA-Public Use
  Company Number: 014597

PATIENT
  Sex: Male

DRUGS (1)
  1. LEVETIRACETAM [Suspect]

REACTIONS (4)
  - AGGRESSION [None]
  - COGNITIVE DISORDER [None]
  - MAJOR DEPRESSION [None]
  - PHYSICAL ASSAULT [None]
